FAERS Safety Report 17095308 (Version 1)
Quarter: 2019Q4

REPORT INFORMATION
  Report Type: Spontaneous
  Country: US (occurrence: US)
  Receive Date: 20191104
  Receipt Date: 20191104
  Transmission Date: 20200122
  Serious: Yes (Hospitalization)
  Sender: FDA-Public Use
  Company Number: None

PATIENT
  Sex: Female

DRUGS (8)
  1. MOTRIN IB [Concomitant]
     Active Substance: IBUPROFEN
  2. LOSARTAN. [Concomitant]
     Active Substance: LOSARTAN
  3. METFORMIN [Concomitant]
     Active Substance: METFORMIN HYDROCHLORIDE
  4. MAXZIDE [Concomitant]
     Active Substance: HYDROCHLOROTHIAZIDE\TRIAMTERENE
  5. PLAQUENIL [Concomitant]
     Active Substance: HYDROXYCHLOROQUINE SULFATE
  6. FISH OIL [Concomitant]
     Active Substance: FISH OIL
  7. XELJANZ [Suspect]
     Active Substance: TOFACITINIB CITRATE
     Indication: OSTEOARTHRITIS
     Route: 048
     Dates: start: 20181023
  8. PRILOSEC [Concomitant]
     Active Substance: OMEPRAZOLE MAGNESIUM

REACTIONS (1)
  - Hip arthroplasty [None]
